FAERS Safety Report 4769144-9 (Version None)
Quarter: 2005Q3

REPORT INFORMATION
  Report Type: 
  Country: None (occurrence: None)
  Receive Date: 20050912
  Receipt Date: 20050721
  Transmission Date: 20060218
  Serious: Yes (Other)
  Sender: FDA-Public Use
  Company Number: 2005-01554

PATIENT
  Age: 69 Year
  Sex: Female
  Weight: 59.9 kg

DRUGS (1)
  1. VELCADE [Suspect]
     Indication: MULTIPLE MYELOMA
     Dosage: 2.20 MG
     Dates: start: 20050504, end: 20050714

REACTIONS (4)
  - BACK PAIN [None]
  - DIARRHOEA [None]
  - DYSPNOEA [None]
  - PAIN IN EXTREMITY [None]
